FAERS Safety Report 24777880 (Version 1)
Quarter: 2024Q4

REPORT INFORMATION
  Report Type: Spontaneous
  Country: DE (occurrence: DE)
  Receive Date: 20241226
  Receipt Date: 20241226
  Transmission Date: 20250115
  Serious: Yes (Other)
  Sender: SANDOZ
  Company Number: DE-AMGEN-DEUNI2024243398

PATIENT
  Age: 69 Year
  Sex: Female

DRUGS (7)
  1. CARFILZOMIB [Suspect]
     Active Substance: CARFILZOMIB
     Indication: Plasma cell myeloma
     Dosage: 103 MILLIGRAM
     Route: 065
     Dates: start: 20240704, end: 20240718
  2. CARFILZOMIB [Suspect]
     Active Substance: CARFILZOMIB
     Dosage: 103 MILLIGRAM
     Route: 065
     Dates: start: 20240801, end: 20241011
  3. CARFILZOMIB [Suspect]
     Active Substance: CARFILZOMIB
     Dosage: 103 MILLIGRAM
     Route: 065
     Dates: start: 20241024, end: 20241108
  4. DEXAMETHASONE [Suspect]
     Active Substance: DEXAMETHASONE
     Indication: Plasma cell myeloma
     Dosage: 20 MILLIGRAM
     Route: 065
     Dates: start: 20240704
  5. FILGRASTIM [Suspect]
     Active Substance: FILGRASTIM
     Indication: Product used for unknown indication
     Dosage: 6 MILLIGRAM
     Route: 065
     Dates: start: 20241025, end: 20241025
  6. ISATUXIMAB [Suspect]
     Active Substance: ISATUXIMAB
     Indication: Plasma cell myeloma
     Dosage: 770 MILLIGRAM
     Route: 065
     Dates: start: 20240704, end: 20240718
  7. ISATUXIMAB [Suspect]
     Active Substance: ISATUXIMAB
     Dosage: 770 MILLIGRAM
     Route: 065
     Dates: start: 20240801

REACTIONS (5)
  - Neutropenia [Recovered/Resolved]
  - Thrombocytopenia [Recovered/Resolved]
  - Swelling face [Recovered/Resolved]
  - Erythema [Recovered/Resolved]
  - Diarrhoea [Recovered/Resolved]
